FAERS Safety Report 4485526-7 (Version None)
Quarter: 2004Q4

REPORT INFORMATION
  Report Type: 
  Country: None (occurrence: None)
  Receive Date: 20041021
  Receipt Date: 20041007
  Transmission Date: 20050328
  Serious: Yes (Other)
  Sender: FDA-Public Use
  Company Number: 1781-084-1

PATIENT
  Age: 54 Year
  Weight: 100 kg

DRUGS (6)
  1. AMINOPHYLLIN [Suspect]
     Indication: CARDIAC STRESS TEST
     Dosage: 10MG IV
     Route: 042
     Dates: start: 20041006
  2. MORPHINE [Concomitant]
  3. LSIX [Concomitant]
  4. PRINIVIL [Concomitant]
  5. PLAVIX [Concomitant]
  6. ATENOLOL [Concomitant]

REACTIONS (4)
  - BRADYCARDIA [None]
  - CONVULSION [None]
  - HYPOTENSION [None]
  - POST PROCEDURAL COMPLICATION [None]
